FAERS Safety Report 11110382 (Version 1)
Quarter: 2015Q2

REPORT INFORMATION
  Report Type: Spontaneous
  Country: BE (occurrence: BE)
  Receive Date: 20150513
  Receipt Date: 20150513
  Transmission Date: 20150821
  Serious: Yes (Other)
  Sender: FDA-Public Use
  Company Number: BE-BAXTER-2015BAX023769

PATIENT
  Age: 12 Year
  Sex: Male

DRUGS (4)
  1. POTASSIUM [Suspect]
     Active Substance: POTASSIUM
     Indication: HYPOKALAEMIA
     Route: 041
  2. BREVIBLOC [Suspect]
     Active Substance: ESMOLOL HYDROCHLORIDE
     Indication: VENTRICULAR TACHYCARDIA
     Route: 040
  3. BREVIBLOC [Suspect]
     Active Substance: ESMOLOL HYDROCHLORIDE
     Dosage: 50 MICROGRAM PER KILOGRAM PER MINUTE
     Route: 042
  4. MAGNESIUM SULPHATE [Suspect]
     Active Substance: MAGNESIUM SULFATE
     Indication: VENTRICULAR TACHYCARDIA
     Dosage: PER KILOGRAM PER DAY
     Route: 042

REACTIONS (1)
  - Hypertension [Recovered/Resolved]
